FAERS Safety Report 6740710-4 (Version None)
Quarter: 2010Q2

REPORT INFORMATION
  Report Type: 
  Country: None (occurrence: None)
  Receive Date: 20100525
  Receipt Date: 20100520
  Transmission Date: 20101027
  Serious: Yes (Death)
  Sender: FDA-Public Use
  Company Number: US-GILEAD-2010-0029356

PATIENT
  Sex: Female
  Weight: 50 kg

DRUGS (10)
  1. LETAIRIS [Suspect]
     Indication: PULMONARY ARTERIAL HYPERTENSION
     Route: 048
     Dates: start: 20090129, end: 20090412
  2. TORSEMIDE [Concomitant]
  3. PROPRANOLOL [Concomitant]
  4. ICAPS [Concomitant]
  5. TRAMADOL HCL [Concomitant]
  6. AZITHROMYCIN [Concomitant]
  7. MEGESTROL ACETATE [Concomitant]
  8. PREDNISONE [Concomitant]
  9. OMEPRAZOLE [Concomitant]
  10. FOLBIC [Concomitant]

REACTIONS (1)
  - DEATH [None]
